FAERS Safety Report 5096549-1 (Version None)
Quarter: 2006Q3

REPORT INFORMATION
  Report Type: 
  Country: None (occurrence: None)
  Receive Date: 20060830
  Receipt Date: 20060817
  Transmission Date: 20061208
  Serious: Yes (Other)
  Sender: FDA-Public Use
  Company Number: 2006097196

PATIENT
  Age: 36 Year
  Sex: Male

DRUGS (1)
  1. EPANUTIN SUSPENSION (PHENYTOIN SODIUM) [Suspect]
     Indication: EPILEPSY
     Dosage: ORAL
     Route: 048

REACTIONS (4)
  - ANTICONVULSANT DRUG LEVEL DECREASED [None]
  - HAEMODIALYSIS [None]
  - RENAL FAILURE [None]
  - UNDERDOSE [None]
